FAERS Safety Report 9884520 (Version 2)
Quarter: 2014Q1

REPORT INFORMATION
  Report Type: Spontaneous
  Country: US (occurrence: US)
  Receive Date: 20140210
  Receipt Date: 20140210
  Transmission Date: 20141002
  Serious: No
  Sender: FDA-Public Use
  Company Number: US-ALLERGAN-1319514US

PATIENT
  Age: 51 Year
  Sex: Female

DRUGS (4)
  1. BOTOX COSMETIC [Suspect]
     Indication: SKIN WRINKLING
     Dosage: 28 UNITS, SINGLE
     Route: 030
     Dates: start: 20131202, end: 20131202
  2. BOTOX COSMETIC [Suspect]
     Indication: SKIN WRINKLING
  3. ESTROGEN [Concomitant]
  4. BIOIDENTICALS NOS [Concomitant]
     Indication: PRODUCT USED FOR UNKNOWN INDICATION

REACTIONS (3)
  - Eyelid ptosis [Recovered/Resolved]
  - Skin tightness [Recovered/Resolved]
  - Facial paresis [Recovered/Resolved]
